FAERS Safety Report 9243347 (Version 1)
Quarter: 2013Q2

REPORT INFORMATION
  Report Type: Spontaneous
  Country: GB (occurrence: GB)
  Receive Date: 20130420
  Receipt Date: 20130420
  Transmission Date: 20140414
  Serious: Yes (Other)
  Sender: FDA-Public Use
  Company Number: GB-US-EMD SERONO, INC.-7173081

PATIENT
  Age: 36 Year
  Sex: Female

DRUGS (9)
  1. REBIF [Suspect]
     Indication: PRODUCT USED FOR UNKNOWN INDICATION
     Route: 058
     Dates: start: 20121102
  2. REBIF [Suspect]
     Route: 058
  3. PREGABALIN [Concomitant]
     Indication: PRODUCT USED FOR UNKNOWN INDICATION
  4. VOLTAROL [Concomitant]
     Indication: PRODUCT USED FOR UNKNOWN INDICATION
  5. BETAHISTAMINE (BETAHISTINE) [Concomitant]
     Indication: PRODUCT USED FOR UNKNOWN INDICATION
  6. VIT D (VITAMIN D) [Concomitant]
     Indication: PRODUCT USED FOR UNKNOWN INDICATION
  7. LAMAPRAZOLE (LANSOPRAZOLE) [Concomitant]
     Indication: PRODUCT USED FOR UNKNOWN INDICATION
  8. RINITADINE (RANITIDINE) [Concomitant]
     Indication: PRODUCT USED FOR UNKNOWN INDICATION
  9. DEPOPROVERA [Concomitant]
     Indication: PRODUCT USED FOR UNKNOWN INDICATION

REACTIONS (8)
  - Diabetes mellitus [Unknown]
  - Fall [Unknown]
  - Pain in extremity [Unknown]
  - Gait disturbance [Unknown]
  - Injection site haemorrhage [Unknown]
  - Injection site pain [Unknown]
  - Injection site erythema [Unknown]
  - Injection site mass [Unknown]
